FAERS Safety Report 19510368 (Version 1)
Quarter: 2021Q3

REPORT INFORMATION
  Report Type: Other
  Country: CA (occurrence: CA)
  Receive Date: 20210709
  Receipt Date: 20210709
  Transmission Date: 20211014
  Serious: Yes (Disabling)
  Sender: FDA-Public Use
  Company Number: CA-APOTEX-2021AP014997

PATIENT
  Age: 8 Year
  Sex: Female
  Weight: 23.58 kg

DRUGS (2)
  1. APO?ATOMOXETINE [Suspect]
     Active Substance: ATOMOXETINE
     Indication: ATTENTION DEFICIT HYPERACTIVITY DISORDER
     Dosage: UNK UNK, SINGLE (ONCE)
     Route: 048
  2. APO?ATOMOXETINE [Suspect]
     Active Substance: ATOMOXETINE
     Dosage: 18 MILLIGRAM, SINGLE (ONCE)
     Route: 048

REACTIONS (7)
  - Psychomotor hyperactivity [Recovered/Resolved]
  - Disinhibition [Recovered/Resolved]
  - Aggression [Recovered/Resolved]
  - Emotional disorder [Recovered/Resolved]
  - Violence-related symptom [Recovered/Resolved]
  - Agitation [Recovered/Resolved]
  - Product substitution issue [Recovered/Resolved]
